FAERS Safety Report 6449262-X (Version None)
Quarter: 2009Q4

REPORT INFORMATION
  Report Type: 
  Country: None (occurrence: None)
  Receive Date: 20091113
  Receipt Date: 20080827
  Transmission Date: 20100525
  Serious: Yes (Other)
  Sender: FDA-Public Use
  Company Number: 200813955

PATIENT
  Age: 50 Year
  Sex: Female
  Weight: 72.5755 kg

DRUGS (17)
  1. VIVAGLOBIN [Suspect]
     Indication: BLOOD IMMUNOGLOBULIN G DECREASED
     Dosage: 30 ML Q1W SC, SC, SC
     Route: 058
     Dates: start: 20080821, end: 20080821
  2. VIVAGLOBIN [Suspect]
     Indication: INFECTION
     Dosage: 30 ML Q1W SC, SC, SC
     Route: 058
     Dates: start: 20080821, end: 20080821
  3. VIVAGLOBIN [Suspect]
     Indication: BLOOD IMMUNOGLOBULIN G DECREASED
     Dosage: 30 ML Q1W SC, SC, SC
     Route: 058
     Dates: start: 20080821, end: 20080821
  4. VIVAGLOBIN [Suspect]
     Indication: INFECTION
     Dosage: 30 ML Q1W SC, SC, SC
     Route: 058
     Dates: start: 20080821, end: 20080821
  5. VIVAGLOBIN [Suspect]
     Indication: BLOOD IMMUNOGLOBULIN G DECREASED
     Dosage: 30 ML Q1W SC, SC, SC
     Route: 058
     Dates: start: 20071201
  6. VIVAGLOBIN [Suspect]
     Indication: INFECTION
     Dosage: 30 ML Q1W SC, SC, SC
     Route: 058
     Dates: start: 20071201
  7. VIVAGLOBIN [Suspect]
  8. DIGOXIN [Concomitant]
  9. POTASSIUM CHLORIDE [Concomitant]
  10. MAXIDEX [Concomitant]
  11. ATIVAN [Concomitant]
  12. CALCIUM +VIT D [Concomitant]
  13. ALBUTEROL [Concomitant]
  14. RHINOCORT [Concomitant]
  15. SYMBICORT [Concomitant]
  16. SINGULAIR [Concomitant]
  17. ZOLOFT [Concomitant]

REACTIONS (5)
  - HEADACHE [None]
  - INFUSION SITE SWELLING [None]
  - NAUSEA [None]
  - OEDEMA PERIPHERAL [None]
  - SWELLING [None]
